FAERS Safety Report 6437986-X (Version None)
Quarter: 2009Q4

REPORT INFORMATION
  Report Type: 
  Country: None (occurrence: None)
  Receive Date: 20091112
  Receipt Date: 20091104
  Transmission Date: 20100525
  Serious: Yes (Death)
  Sender: FDA-Public Use
  Company Number: GXKR2009GB12189

PATIENT
  Age: 45 Year
  Sex: Female

DRUGS (7)
  1. TEMAZEPAM (NGX) [Suspect]
     Route: 065
  2. AMITRIPTYLINE (NGX) [Suspect]
     Route: 065
  3. PARACETAMOL (NGX) [Suspect]
     Route: 065
  4. TRAMADOL (NGX) [Suspect]
     Route: 065
  5. CODEINE [Suspect]
     Route: 065
  6. ORAMORPH SR [Suspect]
     Route: 065
  7. OXYNORM [Suspect]
     Route: 065

REACTIONS (2)
  - DRUG TOXICITY [None]
  - OVERDOSE [None]
